FAERS Safety Report 5113420-7 (Version None)
Quarter: 2006Q3

REPORT INFORMATION
  Report Type: 
  Country: None (occurrence: None)
  Receive Date: 20060923
  Receipt Date: 20060911
  Transmission Date: 20061208
  Serious: Yes (Hospitalization)
  Sender: FDA-Public Use
  Company Number: US-JNJFOC-20060905021

PATIENT
  Age: 53 Year
  Sex: Male
  Weight: 81.5 kg

DRUGS (9)
  1. REOPRO [Suspect]
     Indication: DRUG USE FOR UNKNOWN INDICATION
     Route: 040
  2. DALTEPARIN SODIUM [Suspect]
     Indication: DRUG USE FOR UNKNOWN INDICATION
     Route: 058
  3. CLEXANE [Suspect]
     Indication: DRUG USE FOR UNKNOWN INDICATION
     Route: 058
  4. INSULIN [Concomitant]
     Route: 058
  5. GLUCOPHAGE [Concomitant]
     Route: 048
  6. TRIATEC [Concomitant]
     Route: 048
  7. BELOC [Concomitant]
     Route: 048
  8. PLAVIX [Concomitant]
     Route: 048
  9. ASPIRIN [Concomitant]
     Route: 048

REACTIONS (3)
  - ATRIAL FIBRILLATION [None]
  - CORONARY ARTERY RESTENOSIS [None]
  - THROMBOCYTOPENIA [None]
